FAERS Safety Report 11754868 (Version 4)
Quarter: 2016Q2

REPORT INFORMATION
  Report Type: Spontaneous
  Country: SK (occurrence: SK)
  Receive Date: 20151119
  Receipt Date: 20160414
  Transmission Date: 20160815
  Serious: Yes (Death, Hospitalization, Other)
  Sender: FDA-Public Use
  Company Number: SK-ARIAD PHARMACEUTICALS, INC-2015SK005723

PATIENT
  Age: 58 Year
  Sex: Male
  Weight: 68 kg

DRUGS (1)
  1. ICLUSIG [Suspect]
     Active Substance: PONATINIB
     Indication: CHRONIC MYELOID LEUKAEMIA
     Dosage: 45 MG, QD
     Route: 048
     Dates: start: 20150902, end: 201510

REACTIONS (15)
  - Pneumonia [Fatal]
  - Renal failure [Unknown]
  - Pyrexia [Unknown]
  - Blast cell count increased [Unknown]
  - Lymphadenopathy [Unknown]
  - Liver disorder [Unknown]
  - Respiratory failure [Unknown]
  - Hepatosplenomegaly [Unknown]
  - Immunodeficiency [Fatal]
  - Respiratory rate increased [Unknown]
  - Anaemia [Unknown]
  - Face oedema [Unknown]
  - Thrombocytopenia [Unknown]
  - Neoplasm progression [Fatal]
  - Hypotension [Unknown]

NARRATIVE: CASE EVENT DATE: 201510
